FAERS Safety Report 15553082 (Version 1)
Quarter: 2018Q4

REPORT INFORMATION
  Report Type: Spontaneous
  Country: ES (occurrence: ES)
  Receive Date: 20181026
  Receipt Date: 20181026
  Transmission Date: 20190205
  Serious: Yes (Hospitalization, Other)
  Sender: FDA-Public Use
  Company Number: ES-AUROBINDO-AUR-APL-2018-052139

PATIENT
  Age: 67 Year
  Sex: Male

DRUGS (4)
  1. DOCETAXEL. [Suspect]
     Active Substance: DOCETAXEL
     Indication: PRODUCT USED FOR UNKNOWN INDICATION
     Dosage: 94 MILLIGRAM,94 MG CICLO 4
     Route: 042
     Dates: start: 20180313, end: 20180313
  2. OXALIPLATIN. [Suspect]
     Active Substance: OXALIPLATIN
     Indication: PRODUCT USED FOR UNKNOWN INDICATION
     Dosage: 158 MILLIGRAM,158 MG, CICLO 4
     Route: 042
     Dates: start: 20180313, end: 20180313
  3. FLUOROURACIL. [Suspect]
     Active Substance: FLUOROURACIL
     Indication: PRODUCT USED FOR UNKNOWN INDICATION
     Dosage: 4888 MILLIGRAM,4888 MG CICLO 4
     Route: 042
     Dates: start: 20180313, end: 20180313
  4. LEUCOVORIN                         /00566701/ [Concomitant]
     Active Substance: LEUCOVORIN
     Indication: PRODUCT USED FOR UNKNOWN INDICATION
     Dosage: 376 MILLIGRAM
     Route: 042
     Dates: start: 20180313, end: 20180313

REACTIONS (2)
  - Pancreatitis acute [Recovered/Resolved]
  - Colitis [Recovered/Resolved]

NARRATIVE: CASE EVENT DATE: 20180316
